FAERS Safety Report 10068621 (Version 1)
Quarter: 2014Q2

REPORT INFORMATION
  Report Type: Spontaneous
  Country: CA (occurrence: CA)
  Receive Date: 20140409
  Receipt Date: 20140409
  Transmission Date: 20141212
  Serious: Yes (Hospitalization)
  Sender: FDA-Public Use
  Company Number: CA-GLAXOSMITHKLINE-A1068549A

PATIENT
  Age: 84 Year
  Sex: Male

DRUGS (10)
  1. VALTREX [Suspect]
     Indication: PRODUCT USED FOR UNKNOWN INDICATION
     Dosage: 1G TWICE PER DAY
     Route: 048
  2. ARANESP [Concomitant]
     Route: 048
  3. BISOPROLOL [Concomitant]
     Route: 048
  4. CALCIUM CARBONATE [Concomitant]
     Route: 048
  5. COLACE [Concomitant]
     Route: 048
  6. UNKNOWN MEDICATION [Concomitant]
     Route: 048
  7. REPLAVITE [Concomitant]
     Route: 047
  8. SENNOSIDES [Concomitant]
     Route: 048
  9. TAMSULOSIN [Concomitant]
     Route: 048
  10. WARFARIN [Concomitant]
     Route: 048

REACTIONS (3)
  - Delirium [Recovered/Resolved]
  - Urosepsis [Recovered/Resolved]
  - Confusional state [Recovered/Resolved]
